FAERS Safety Report 4349091-7 (Version None)
Quarter: 2004Q2

REPORT INFORMATION
  Report Type: 
  Country: None (occurrence: None)
  Receive Date: 20040423
  Receipt Date: 20040415
  Transmission Date: 20050107
  Serious: Yes (Hospitalization, Disabling)
  Sender: FDA-Public Use
  Company Number: 04P-028-0253889-00

PATIENT
  Age: 39 Year
  Sex: Male
  Weight: 86.5 kg

DRUGS (13)
  1. KALETRA [Suspect]
     Indication: HIV INFECTION
     Dosage: 1 CAPSULE, 8 IN 1 D, PER ORAL
     Route: 048
     Dates: start: 20030926, end: 20040123
  2. KALETRA [Suspect]
     Indication: HIV INFECTION
     Dosage: 1 CAPSULE, 8 IN 1 D, PER ORAL
     Route: 048
     Dates: start: 20040305, end: 20040327
  3. KALETRA [Suspect]
     Indication: HIV INFECTION
     Dosage: 1 CAPSULE, 8 IN 1 D, PER ORAL
     Route: 048
     Dates: start: 20040327, end: 20040406
  4. KALETRA [Suspect]
     Indication: HIV INFECTION
     Dosage: 1 CAPSULE, 8 IN 1 D, PER ORAL
     Route: 048
     Dates: start: 20040406
  5. NEVIRAPINE [Suspect]
     Indication: HIV INFECTION
     Dosage: SEE IMAGE
     Route: 048
     Dates: start: 20031010, end: 20040123
  6. NEVIRAPINE [Suspect]
     Indication: HIV INFECTION
     Dosage: SEE IMAGE
     Route: 048
     Dates: start: 20030926, end: 20041010
  7. MIRTAZAPINE [Concomitant]
  8. OXYCOCET [Concomitant]
  9. ABACAVIR [Concomitant]
  10. LAMIVUDINE [Concomitant]
  11. ZOPICLONE [Concomitant]
  12. CIDOFOVIR [Concomitant]
  13. MORPHINE SULFATE [Concomitant]

REACTIONS (15)
  - APHASIA [None]
  - ASTHENIA [None]
  - DYSARTHRIA [None]
  - DYSPHEMIA [None]
  - FACIAL PALSY [None]
  - GRIP STRENGTH DECREASED [None]
  - HEMIPARESIS [None]
  - HEPATITIS ACUTE [None]
  - HYPOAESTHESIA [None]
  - HYPOREFLEXIA [None]
  - IMMUNE RECONSTITUTION SYNDROME [None]
  - PARAESTHESIA [None]
  - PROGRESSIVE MULTIFOCAL LEUKOENCEPHALOPATHY [None]
  - SPEECH DISORDER [None]
  - TONGUE PARALYSIS [None]
